FAERS Safety Report 7252505-6 (Version None)
Quarter: 2011Q1

REPORT INFORMATION
  Report Type: 
  Country: None (occurrence: None)
  Receive Date: 20110129
  Receipt Date: 20100427
  Transmission Date: 20110831
  Serious: No
  Sender: FDA-Public Use
  Company Number: US-ABBOTT-09P-163-0567340-00

PATIENT
  Sex: Male
  Weight: 100.79 kg

DRUGS (6)
  1. HUMIRA [Suspect]
  2. UNKNOWN DIGESTIVE ENZYMES [Concomitant]
     Indication: PRODUCT USED FOR UNKNOWN INDICATION
  3. HUMIRA [Suspect]
     Indication: RHEUMATOID ARTHRITIS
     Dates: start: 20060101
  4. IMURAN [Concomitant]
     Indication: RHEUMATOID ARTHRITIS
     Dates: end: 20100101
  5. MILK THISTLE SUPPLEMENT [Concomitant]
     Indication: LIVER DISORDER
  6. RESPIRATROL [Concomitant]
     Indication: DRY EYE

REACTIONS (6)
  - DRUG INEFFECTIVE [None]
  - ASPARTATE AMINOTRANSFERASE INCREASED [None]
  - ALANINE AMINOTRANSFERASE INCREASED [None]
  - DRUG EFFECT DECREASED [None]
  - BREAKTHROUGH PAIN [None]
  - FATIGUE [None]
